FAERS Safety Report 9997804 (Version 2)
Quarter: 2015Q1

REPORT INFORMATION
  Report Type: Spontaneous
  Country: US (occurrence: None)
  Receive Date: 20140225
  Receipt Date: 20150225
  Transmission Date: 20150721
  Serious: Yes (Other)
  Sender: FDA-Public Use
  Company Number: 2013-US-002640

PATIENT
  Age: 54 Year
  Sex: Male

DRUGS (2)
  1. PRIALT [Suspect]
     Active Substance: ZICONOTIDE ACETATE
     Indication: PAIN
     Route: 037
  2. DILAUDID [Suspect]
     Active Substance: HYDROMORPHONE HYDROCHLORIDE
     Indication: PAIN
     Route: 037

REACTIONS (10)
  - Hypoaesthesia [None]
  - Heart rate increased [None]
  - Heart rate irregular [None]
  - Disturbance in attention [None]
  - Anxiety [None]
  - Device issue [None]
  - Abdominal discomfort [None]
  - Hallucination, auditory [None]
  - Blood pressure abnormal [None]
  - Emotional distress [None]

NARRATIVE: CASE EVENT DATE: 201306
